FAERS Safety Report 6788538-3 (Version None)
Quarter: 2010Q2

REPORT INFORMATION
  Report Type: 
  Country: None (occurrence: None)
  Receive Date: 20100623
  Receipt Date: 20080627
  Transmission Date: 20101027
  Serious: No
  Sender: FDA-Public Use
  Company Number: US-PFIZER INC-2008029004

PATIENT
  Sex: Female
  Weight: 72.57 kg

DRUGS (2)
  1. GEODON [Suspect]
     Indication: BIPOLAR DISORDER
     Dates: start: 20070601, end: 20080324
  2. RISPERDAL [Concomitant]

REACTIONS (2)
  - BLOOD PROLACTIN INCREASED [None]
  - VOMITING [None]
